FAERS Safety Report 5496644-9 (Version None)
Quarter: 2007Q4

REPORT INFORMATION
  Report Type: 
  Country: None (occurrence: None)
  Receive Date: 20071025
  Receipt Date: 20070627
  Transmission Date: 20080405
  Serious: No
  Sender: FDA-Public Use
  Company Number: A0660350A

PATIENT
  Age: 84 Year
  Sex: Male

DRUGS (4)
  1. ADVAIR DISKUS 100/50 [Suspect]
     Indication: BRONCHITIS
     Dosage: 1PUFF TWICE PER DAY
     Route: 055
     Dates: start: 20070301, end: 20070601
  2. ZOCOR [Concomitant]
  3. ACIPHEX [Concomitant]
  4. HYZAAR [Concomitant]

REACTIONS (5)
  - CANDIDIASIS [None]
  - HYPOGEUSIA [None]
  - MOUTH ULCERATION [None]
  - ORAL DISCOMFORT [None]
  - STOMATITIS [None]
